FAERS Safety Report 5367410-X (Version None)
Quarter: 2007Q2

REPORT INFORMATION
  Report Type: 
  Country: None (occurrence: None)
  Receive Date: 20070622
  Receipt Date: 20060907
  Transmission Date: 20071010
  Serious: No
  Sender: FDA-Public Use
  Company Number: US-ASTRAZENECA-2006UW17611

PATIENT
  Age: 65 Year
  Sex: Male
  Weight: 94.3 kg

DRUGS (5)
  1. PULMICORT RESPULES [Suspect]
     Indication: ASTHMA
     Dosage: 0.5 MG/2 ML
     Route: 055
     Dates: start: 20060906
  2. DOXYCYCLINE [Concomitant]
     Indication: RESPIRATORY TRACT INFECTION
     Dates: start: 20060801
  3. DILTIAZEM HCL [Concomitant]
  4. METFORMIN HCL [Concomitant]
  5. LISINOPRIL [Concomitant]

REACTIONS (1)
  - BLOOD GLUCOSE INCREASED [None]
